FAERS Safety Report 9616071 (Version 3)
Quarter: 2013Q4

REPORT INFORMATION
  Report Type: Spontaneous
  Country: JP (occurrence: JP)
  Receive Date: 20131011
  Receipt Date: 20131202
  Transmission Date: 20140711
  Serious: Yes (Other)
  Sender: FDA-Public Use
  Company Number: JP-PFIZER INC-2013288034

PATIENT
  Age: 24 Year
  Sex: Female

DRUGS (1)
  1. ZITHROMAC [Suspect]
     Indication: BRONCHITIS
     Dosage: 500 MG, DAILY
     Route: 048
     Dates: start: 20131003

REACTIONS (11)
  - Autoimmune disorder [Unknown]
  - Dyspnoea [Unknown]
  - Face oedema [Recovered/Resolved]
  - Lip swelling [Recovered/Resolved]
  - Arthralgia [Unknown]
  - Gait disturbance [Unknown]
  - Rash [Recovered/Resolved]
  - Pyrexia [Unknown]
  - Cold sweat [Unknown]
  - C-reactive protein increased [Unknown]
  - White blood cell count increased [Unknown]
